FAERS Safety Report 15703070 (Version 7)
Quarter: 2020Q1

REPORT INFORMATION
  Report Type: Report from Study
  Country: US (occurrence: US)
  Receive Date: 20181210
  Receipt Date: 20200218
  Transmission Date: 20200409
  Serious: Yes (Hospitalization, Other)
  Sender: FDA-Public Use
  Company Number: US-ASTELLAS-2018US051796

PATIENT
  Age: 71 Year
  Sex: Male

DRUGS (4)
  1. ENZALUTAMIDE [Suspect]
     Active Substance: ENZALUTAMIDE
     Route: 048
  2. ENZALUTAMIDE [Suspect]
     Active Substance: ENZALUTAMIDE
     Indication: BONE CANCER
     Route: 048
  3. ENZALUTAMIDE [Suspect]
     Active Substance: ENZALUTAMIDE
     Indication: PROSTATE CANCER
     Route: 048
     Dates: start: 20181115
  4. ENZALUTAMIDE [Suspect]
     Active Substance: ENZALUTAMIDE
     Route: 048
     Dates: start: 20191004

REACTIONS (19)
  - Memory impairment [Unknown]
  - Cerebrovascular accident [Unknown]
  - Hallucination [Unknown]
  - Headache [Unknown]
  - Escherichia sepsis [Recovered/Resolved]
  - Hypertension [Unknown]
  - Feeling abnormal [Unknown]
  - Migraine [Unknown]
  - Fatigue [Unknown]
  - Asthenia [Unknown]
  - Septic shock [Unknown]
  - Urinary tract infection [Recovered/Resolved]
  - Weight decreased [Unknown]
  - Sepsis [Unknown]
  - Product use in unapproved indication [Unknown]
  - Wound infection [Unknown]
  - Constipation [Unknown]
  - Back pain [Unknown]
  - Dizziness [Unknown]

NARRATIVE: CASE EVENT DATE: 20181115
